FAERS Safety Report 18724309 (Version 1)
Quarter: 2021Q1

REPORT INFORMATION
  Report Type: Spontaneous
  Country: US (occurrence: US)
  Receive Date: 20210110
  Receipt Date: 20210110
  Transmission Date: 20210419
  Serious: No
  Sender: FDA-Public Use
  Company Number: None

PATIENT
  Age: 77 Year
  Sex: Female
  Weight: 54 kg

DRUGS (7)
  1. XIIDRA [Suspect]
     Active Substance: LIFITEGRAST
     Indication: DRY EYE
     Dosage: ?          QUANTITY:2 DROP(S);?
     Route: 047
     Dates: start: 20201030, end: 20201112
  2. PROBIOTIC PEARLS COMPLETE [Concomitant]
  3. PEPCID [Concomitant]
     Active Substance: FAMOTIDINE
  4. CITRACAL WITH D [Concomitant]
  5. CITALOPRAN [Concomitant]
  6. CENTRUM SILVER [Concomitant]
     Active Substance: MINERALS\VITAMINS
  7. GASX [Concomitant]

REACTIONS (6)
  - Agitation [None]
  - Decreased appetite [None]
  - Insomnia [None]
  - Nervousness [None]
  - Eye discharge [None]
  - Dysgeusia [None]

NARRATIVE: CASE EVENT DATE: 20201030
